FAERS Safety Report 10028239 (Version 1)
Quarter: 2014Q1

REPORT INFORMATION
  Report Type: Spontaneous
  Country: US (occurrence: None)
  Receive Date: 20140319
  Receipt Date: 20140319
  Transmission Date: 20141002
  Serious: Yes (Hospitalization)
  Sender: FDA-Public Use
  Company Number: 2014-US-0054

PATIENT
  Age: 40 Year
  Sex: Female

DRUGS (1)
  1. SANCUSO [Suspect]
     Indication: PROPHYLAXIS OF NAUSEA AND VOMITING
     Route: 061

REACTIONS (1)
  - Vertigo [None]
